FAERS Safety Report 24395065 (Version 1)
Quarter: 2024Q4

REPORT INFORMATION
  Report Type: Report from Study
  Country: US (occurrence: US)
  Receive Date: 20241004
  Receipt Date: 20241004
  Transmission Date: 20250115
  Serious: Yes (Hospitalization)
  Sender: ABBVIE
  Company Number: US-ABBVIE-5943098

PATIENT
  Age: 71 Year
  Sex: Male

DRUGS (1)
  1. SKYRIZI [Suspect]
     Active Substance: RISANKIZUMAB-RZAA
     Indication: Psoriasis
     Route: 058
     Dates: start: 20220601

REACTIONS (4)
  - Sepsis [Recovered/Resolved]
  - Cardiac disorder [Not Recovered/Not Resolved]
  - Cholecystitis infective [Recovered/Resolved]
  - Cholelithiasis obstructive [Not Recovered/Not Resolved]

NARRATIVE: CASE EVENT DATE: 20240801
